FAERS Safety Report 9696198 (Version 2)
Quarter: 2013Q4

REPORT INFORMATION
  Report Type: Spontaneous
  Country: JP (occurrence: JP)
  Receive Date: 20131119
  Receipt Date: 20131119
  Transmission Date: 20140711
  Serious: Yes (Hospitalization)
  Sender: FDA-Public Use
  Company Number: PHHY2013JP112308

PATIENT
  Sex: Female

DRUGS (2)
  1. NEORAL [Suspect]
     Indication: INTERSTITIAL LUNG DISEASE
     Route: 048
  2. NEORAL [Suspect]
     Indication: OFF LABEL USE

REACTIONS (2)
  - Back pain [Recovered/Resolved]
  - Gait disturbance [Recovered/Resolved]
